FAERS Safety Report 19443572 (Version 2)
Quarter: 2021Q3

REPORT INFORMATION
  Report Type: Spontaneous
  Country: CA (occurrence: CA)
  Receive Date: 20210621
  Receipt Date: 20210701
  Transmission Date: 20211014
  Serious: Yes (Hospitalization, Other)
  Sender: FDA-Public Use
  Company Number: CA-PFIZER INC-2020389302

PATIENT
  Age: 59 Year
  Sex: Male

DRUGS (15)
  1. CORTISONE [Concomitant]
     Active Substance: CORTISONE
     Dosage: UNK
  2. EZETROL [Concomitant]
     Active Substance: EZETIMIBE
     Dosage: UNK
  3. XELJANZ [Suspect]
     Active Substance: TOFACITINIB CITRATE
     Dosage: 5 MG, 2X/DAY
     Route: 048
     Dates: start: 20210617
  4. XELJANZ [Suspect]
     Active Substance: TOFACITINIB CITRATE
     Indication: PSORIATIC ARTHROPATHY
     Dosage: 5 MG, 2X/DAY
     Route: 048
     Dates: start: 20200914, end: 20210509
  5. FENOFIBRATE. [Concomitant]
     Active Substance: FENOFIBRATE
     Dosage: UNK MG
  6. ROSUVASTATIN. [Concomitant]
     Active Substance: ROSUVASTATIN
     Dosage: UNK MG
  7. LANTUS [Concomitant]
     Active Substance: INSULIN GLARGINE
     Dosage: 15 IU, DAILY
  8. INVOKANA [Concomitant]
     Active Substance: CANAGLIFLOZIN
     Dosage: UNK MG
  9. METFORMIN [Concomitant]
     Active Substance: METFORMIN HYDROCHLORIDE
     Dosage: UNK
  10. OMEPRAZOLE. [Concomitant]
     Active Substance: OMEPRAZOLE
     Dosage: UNK
  11. ASA EC [Concomitant]
     Active Substance: ASPIRIN
     Dosage: UNK MG
  12. HUMALOG [Concomitant]
     Active Substance: INSULIN LISPRO
     Dosage: 30 IU
  13. LANTUS [Concomitant]
     Active Substance: INSULIN GLARGINE
     Dosage: 20 IU, DAILY
  14. OZEMPIC [Concomitant]
     Active Substance: SEMAGLUTIDE
     Dosage: UNK
  15. PERINDOPRIL [Concomitant]
     Active Substance: PERINDOPRIL
     Dosage: UNK, DAILY

REACTIONS (3)
  - COVID-19 [Recovering/Resolving]
  - Illness [Unknown]
  - Weight decreased [Recovering/Resolving]

NARRATIVE: CASE EVENT DATE: 202105
